FAERS Safety Report 10502168 (Version 1)
Quarter: 2014Q4

REPORT INFORMATION
  Report Type: Spontaneous
  Country: US (occurrence: US)
  Receive Date: 20141007
  Receipt Date: 20141007
  Transmission Date: 20150528
  Serious: No
  Sender: FDA-Public Use
  Company Number: US-PFIZER INC-2014273403

PATIENT
  Age: 66 Year
  Sex: Female
  Weight: 62 kg

DRUGS (13)
  1. PREDNISONE. [Concomitant]
     Active Substance: PREDNISONE
     Dosage: 10 MG, 2X/DAY
  2. ROPINIROLE. [Concomitant]
     Active Substance: ROPINIROLE
     Dosage: 0.5 MG, DAILY
  3. NIFEDICAL XL [Concomitant]
     Active Substance: NIFEDIPINE
     Dosage: 30 MG, DAILY
  4. FENTANYL. [Concomitant]
     Active Substance: FENTANYL
     Dosage: 100 UG, EVERY 72 HOURS
     Route: 062
  5. OXYCODONE [Concomitant]
     Active Substance: OXYCODONE
     Dosage: 10 MG, 4X/DAY AS NEEDED
  6. PEPCID [Concomitant]
     Active Substance: FAMOTIDINE
     Dosage: 20 MG, 2X/DAY
  7. LASIX [Concomitant]
     Active Substance: FUROSEMIDE
     Dosage: 20 MG, DAILY AS NEEDED
  8. WARFARIN [Concomitant]
     Active Substance: WARFARIN
     Dosage: 1 MG, DAILY DEPENDING ON INR
     Route: 048
  9. PROZAC [Concomitant]
     Active Substance: FLUOXETINE HYDROCHLORIDE
     Dosage: 20 MG, 1X/DAY
  10. POTASSIUM GLUCONATE [Concomitant]
     Active Substance: POTASSIUM GLUCONATE
     Dosage: 1 DF, 1X/DAY
  11. METRONIDAZOLE. [Suspect]
     Active Substance: METRONIDAZOLE
     Indication: CLOSTRIDIUM DIFFICILE INFECTION
     Dosage: 500 MG, 3X/DAY
     Route: 048
     Dates: start: 20140930
  12. ZANAFLEX [Concomitant]
     Active Substance: TIZANIDINE HYDROCHLORIDE
     Dosage: 2 MG, 2X/DAY
  13. METOPROLOL XL [Concomitant]
     Active Substance: METOPROLOL
     Dosage: 25 MG, 1X/DAY

REACTIONS (2)
  - Product shape issue [Unknown]
  - Dysphagia [Not Recovered/Not Resolved]
